FAERS Safety Report 6162827-8 (Version None)
Quarter: 2009Q2

REPORT INFORMATION
  Report Type: 
  Country: None (occurrence: None)
  Receive Date: 20090421
  Receipt Date: 20080822
  Transmission Date: 20091009
  Serious: No
  Sender: FDA-Public Use
  Company Number: US-ASTRAZENECA-2008UW17281

PATIENT
  Age: 22054 Day
  Sex: Male

DRUGS (1)
  1. TOPROL-XL [Suspect]
     Route: 048
     Dates: start: 20080301

REACTIONS (2)
  - ILL-DEFINED DISORDER [None]
  - OEDEMA PERIPHERAL [None]
